FAERS Safety Report 12093727 (Version 1)
Quarter: 2016Q1

REPORT INFORMATION
  Report Type: Report from Study
  Country: TW (occurrence: TW)
  Receive Date: 20160219
  Receipt Date: 20160219
  Transmission Date: 20160526
  Serious: Yes (Hospitalization)
  Sender: FDA-Public Use
  Company Number: TW-PFIZER INC-2016080953

PATIENT
  Age: 60 Year
  Sex: Male

DRUGS (36)
  1. IRINOTECAN HCL [Suspect]
     Active Substance: IRINOTECAN HYDROCHLORIDE
     Indication: COLORECTAL CANCER
     Dosage: 300 MG, EVERY 3 WEEKS
     Route: 042
     Dates: start: 20140430
  2. IRINOTECAN HCL [Suspect]
     Active Substance: IRINOTECAN HYDROCHLORIDE
     Dosage: 240 MG, EVERY 3 WEEKS
     Route: 042
     Dates: start: 20140911
  3. BEVACIZUMAB [Suspect]
     Active Substance: BEVACIZUMAB
     Dosage: 5 MG, EVERY 3 WEEKS
     Route: 042
     Dates: start: 20140911
  4. CALCIUM FOLINATE [Suspect]
     Active Substance: LEUCOVORIN CALCIUM
     Dosage: 670 MG, EVERY 3 WEEKS
     Route: 042
     Dates: start: 20140514
  5. IRINOTECAN HCL [Suspect]
     Active Substance: IRINOTECAN HYDROCHLORIDE
     Dosage: 300 MG, EVERY 3 WEEKS
     Route: 042
     Dates: start: 20140514
  6. IRINOTECAN HCL [Suspect]
     Active Substance: IRINOTECAN HYDROCHLORIDE
     Dosage: 240 MG, EVERY 3 WEEKS
     Route: 042
     Dates: start: 20140716
  7. FLUOROURACIL. [Suspect]
     Active Substance: FLUOROURACIL
     Dosage: 3740 MG, EVERY 3 WEEKS
     Route: 042
     Dates: start: 20140806, end: 20140808
  8. FLUOROURACIL. [Suspect]
     Active Substance: FLUOROURACIL
     Dosage: 3740 MG, EVERY 3 WEEKS
     Route: 042
     Dates: start: 20141022
  9. BEVACIZUMAB [Suspect]
     Active Substance: BEVACIZUMAB
     Dosage: 5 MG, EVERY 3 WEEKS
     Route: 042
     Dates: start: 20141002
  10. CALCIUM FOLINATE [Suspect]
     Active Substance: LEUCOVORIN CALCIUM
     Dosage: 640 MG, EVERY 3 WEEKS
     Route: 042
     Dates: start: 20140625
  11. CALCIUM FOLINATE [Suspect]
     Active Substance: LEUCOVORIN CALCIUM
     Dosage: 540 MG, EVERY 3 WEEKS
     Route: 042
     Dates: start: 20140806
  12. CALCIUM FOLINATE [Suspect]
     Active Substance: LEUCOVORIN CALCIUM
     Dosage: 540 MG, EVERY 3 WEEKS
     Route: 042
     Dates: start: 20141022
  13. IRINOTECAN HCL [Suspect]
     Active Substance: IRINOTECAN HYDROCHLORIDE
     Dosage: 240 MG, EVERY 3 WEEKS
     Dates: start: 20140806
  14. FLUOROURACIL. [Suspect]
     Active Substance: FLUOROURACIL
     Dosage: 4150 MG, EVERY 3 WEEKS
     Route: 042
     Dates: start: 20140604, end: 20140606
  15. FLUOROURACIL. [Suspect]
     Active Substance: FLUOROURACIL
     Dosage: 4670 MG, EVERY 3 WEEKS
     Route: 042
     Dates: start: 20141222
  16. CALCIUM FOLINATE [Suspect]
     Active Substance: LEUCOVORIN CALCIUM
     Dosage: 540 MG, EVERY 3 WEEKS
     Route: 042
     Dates: start: 20140716
  17. CALCIUM FOLINATE [Suspect]
     Active Substance: LEUCOVORIN CALCIUM
     Dosage: 540 MG, EVERY 3 WEEKS
     Route: 042
     Dates: start: 20140911
  18. FLUOROURACIL. [Suspect]
     Active Substance: FLUOROURACIL
     Dosage: 3740 MG, EVERY 3 WEEKS
     Route: 042
     Dates: start: 20140625, end: 20140627
  19. BEVACIZUMAB [Suspect]
     Active Substance: BEVACIZUMAB
     Dosage: 5 MG, EVERY 3 WEEKS
     Route: 042
     Dates: start: 20141022
  20. IRINOTECAN HCL [Suspect]
     Active Substance: IRINOTECAN HYDROCHLORIDE
     Dosage: 290 MG, EVERY 3 WEEKS
     Route: 042
     Dates: start: 20140604
  21. IRINOTECAN HCL [Suspect]
     Active Substance: IRINOTECAN HYDROCHLORIDE
     Dosage: 540 MG, EVERY 3 WEEKS
     Route: 042
     Dates: start: 20140625
  22. IRINOTECAN HCL [Suspect]
     Active Substance: IRINOTECAN HYDROCHLORIDE
     Dosage: 240 MG, EVERY 3 WEEKS
     Route: 042
     Dates: start: 20141002
  23. CALCIUM FOLINATE [Suspect]
     Active Substance: LEUCOVORIN CALCIUM
     Indication: COLORECTAL CANCER
     Dosage: 670 MG, EVERY 3 WEEKS
     Route: 042
     Dates: start: 20140430
  24. FLUOROURACIL. [Suspect]
     Active Substance: FLUOROURACIL
     Indication: COLORECTAL CANCER
     Dosage: 4670 MG, EVERY 3 WEEKS
     Route: 042
     Dates: start: 20140430, end: 20140502
  25. BEVACIZUMAB [Suspect]
     Active Substance: BEVACIZUMAB
     Dosage: 5 MG, EVERY 3 WEEKS
     Route: 042
     Dates: start: 20140604
  26. IRINOTECAN HCL [Suspect]
     Active Substance: IRINOTECAN HYDROCHLORIDE
     Dosage: 240 MG, EVERY 3 WEEKS
     Route: 042
     Dates: start: 20141022
  27. FLUOROURACIL. [Suspect]
     Active Substance: FLUOROURACIL
     Dosage: 4670 MG, EVERY 3 WEEKS
     Route: 042
     Dates: start: 20140514, end: 20140516
  28. FLUOROURACIL. [Suspect]
     Active Substance: FLUOROURACIL
     Dosage: 3740 MG, EVERY 3 WEEKS
     Route: 042
     Dates: start: 20140911, end: 20140913
  29. BEVACIZUMAB [Suspect]
     Active Substance: BEVACIZUMAB
     Dosage: 5 MG, EVERY 3 WEEKS
     Route: 042
     Dates: start: 20140625
  30. BEVACIZUMAB [Suspect]
     Active Substance: BEVACIZUMAB
     Dosage: 5 MG, EVERY 3 WEEKS
     Route: 042
     Dates: start: 20140716
  31. BEVACIZUMAB [Suspect]
     Active Substance: BEVACIZUMAB
     Dosage: 5 MG, EVERY 3 WEEKS
     Route: 042
     Dates: start: 20140806
  32. CALCIUM FOLINATE [Suspect]
     Active Substance: LEUCOVORIN CALCIUM
     Dosage: 540 MG, EVERY 3 WEEKS
     Route: 042
     Dates: start: 20141002
  33. CALCIUM FOLINATE [Suspect]
     Active Substance: LEUCOVORIN CALCIUM
     Dosage: 670 MG, EVERY 3 WEEKS
     Route: 042
     Dates: start: 20141222
  34. FLUOROURACIL. [Suspect]
     Active Substance: FLUOROURACIL
     Dosage: 3740 MG, EVERY 3 WEEKS
     Route: 042
     Dates: start: 20140716, end: 20140718
  35. BEVACIZUMAB [Suspect]
     Active Substance: BEVACIZUMAB
     Indication: COLORECTAL CANCER
     Dosage: 5 MG, EVERY 3 WEEKS (300 MG,1 IN 3 WK)
     Route: 042
     Dates: start: 20140514
  36. CALCIUM FOLINATE [Suspect]
     Active Substance: LEUCOVORIN CALCIUM
     Dosage: 600 MG, EVERY 3 WEEKS
     Route: 042
     Dates: start: 20140604

REACTIONS (2)
  - Sepsis [Recovered/Resolved]
  - Migraine [Recovered/Resolved]

NARRATIVE: CASE EVENT DATE: 20141110
